FAERS Safety Report 8494986-6 (Version None)
Quarter: 2012Q3

REPORT INFORMATION
  Report Type: 
  Country: None (occurrence: None)
  Receive Date: 20120702
  Receipt Date: 20120702
  Transmission Date: 20120928
  Serious: Yes (Hospitalization)
  Sender: FDA-Public Use
  Company Number: None

PATIENT
  Sex: Male
  Weight: 108 kg

DRUGS (2)
  1. TOBRAMYCIN [Suspect]
  2. VANCOMYCIN [Suspect]

REACTIONS (4)
  - DIALYSIS [None]
  - ESCHERICHIA INFECTION [None]
  - HAEMODIALYSIS [None]
  - RENAL FAILURE ACUTE [None]
